FAERS Safety Report 4606460-5 (Version None)
Quarter: 2005Q1

REPORT INFORMATION
  Report Type: 
  Country: None (occurrence: None)
  Receive Date: 20050311
  Receipt Date: 20050303
  Transmission Date: 20050727
  Serious: Yes (Life-Threatening)
  Sender: FDA-Public Use
  Company Number: NO-MERCK-0503NOR00026

PATIENT
  Age: 71 Year
  Sex: Male

DRUGS (4)
  1. VIOXX [Suspect]
     Indication: ARTHRITIS
     Route: 048
     Dates: start: 20010904, end: 20040101
  2. CELECOXIB [Concomitant]
     Indication: ARTHRITIS
     Route: 048
     Dates: start: 20010628, end: 20040101
  3. VALDECOXIB [Concomitant]
     Route: 065
     Dates: start: 20031101, end: 20040101
  4. NAPROXEN [Concomitant]
     Route: 065
     Dates: start: 20040101

REACTIONS (1)
  - MYOCARDIAL INFARCTION [None]
